FAERS Safety Report 4619907-5 (Version None)
Quarter: 2005Q1

REPORT INFORMATION
  Report Type: 
  Country: None (occurrence: None)
  Receive Date: 20050321
  Receipt Date: 20050321
  Transmission Date: 20050727
  Serious: Yes (Other)
  Sender: FDA-Public Use
  Company Number: None

PATIENT
  Age: 79 Year
  Sex: Female
  Weight: 58.9676 kg

DRUGS (3)
  1. BEANO [Suspect]
     Indication: FLATULENCE
     Dosage: 1 TABLET-PO
     Route: 048
     Dates: start: 20040601
  2. SYNTHROID [Concomitant]
  3. ZANTAC [Concomitant]

REACTIONS (3)
  - MEDICATION ERROR [None]
  - URTICARIA [None]
  - VOMITING [None]
